FAERS Safety Report 24342987 (Version 1)
Quarter: 2024Q3

REPORT INFORMATION
  Report Type: Spontaneous
  Country: US (occurrence: None)
  Receive Date: 20240919
  Receipt Date: 20240919
  Transmission Date: 20241016
  Serious: Yes (Other)
  Sender: Public
  Company Number: None

PATIENT
  Age: 32 Year
  Sex: Female
  Weight: 84.37 kg

DRUGS (1)
  1. VITAMINS [Suspect]
     Active Substance: VITAMINS
     Indication: Dehydration
     Dosage: FREQUENCY : WEEKLY;?
     Route: 042
     Dates: start: 20240919, end: 20240919

REACTIONS (3)
  - Seizure [None]
  - Back pain [None]
  - Dyspnoea [None]

NARRATIVE: CASE EVENT DATE: 20240919
